FAERS Safety Report 25609250 (Version 1)
Quarter: 2025Q3

REPORT INFORMATION
  Report Type: Spontaneous
  Country: US (occurrence: US)
  Receive Date: 20250727
  Receipt Date: 20250727
  Transmission Date: 20251020
  Serious: Yes (Death)
  Sender: CHIESI
  Company Number: US-CHIESI-2025CHF05064

PATIENT
  Sex: Male
  Weight: 28.798 kg

DRUGS (1)
  1. FILSUVEZ [Suspect]
     Active Substance: BIRCH TRITERPENES
     Indication: Epidermolysis bullosa
     Route: 061
     Dates: start: 20241226

REACTIONS (1)
  - Death [Fatal]
